FAERS Safety Report 18968253 (Version 3)
Quarter: 2021Q2

REPORT INFORMATION
  Report Type: Report from Study
  Country: CO (occurrence: CO)
  Receive Date: 20210304
  Receipt Date: 20210628
  Transmission Date: 20210717
  Serious: Yes (Death, Hospitalization, Other)
  Sender: FDA-Public Use
  Company Number: NVSC2020CO237257

PATIENT
  Age: 76 Year
  Sex: Male

DRUGS (4)
  1. MEKINIST [Suspect]
     Active Substance: TRAMETINIB DIMETHYL SULFOXIDE
     Indication: METASTATIC MALIGNANT MELANOMA
     Dosage: UNK (TABLET)
     Route: 048
  2. MEKINIST [Suspect]
     Active Substance: TRAMETINIB DIMETHYL SULFOXIDE
     Indication: BRAF GENE MUTATION
     Dosage: 2 MG, QD
     Route: 048
  3. TAFINLAR [Suspect]
     Active Substance: DABRAFENIB MESYLATE
     Indication: METASTATIC MALIGNANT MELANOMA
     Dosage: UNK (TABLET)
     Route: 048
  4. TAFINLAR [Suspect]
     Active Substance: DABRAFENIB MESYLATE
     Indication: BRAF GENE MUTATION
     Dosage: 150 MG, BID (EVERY 12 HOURS)
     Route: 048

REACTIONS (14)
  - Malignant neoplasm progression [Unknown]
  - Pain [Unknown]
  - Death [Fatal]
  - General physical health deterioration [Unknown]
  - Metastasis [Unknown]
  - Somnolence [Unknown]
  - Metastatic malignant melanoma [Unknown]
  - Haemoglobin decreased [Unknown]
  - Asthenia [Unknown]
  - Dyspnoea [Unknown]
  - Malaise [Unknown]
  - Eating disorder [Unknown]
  - Skin lesion [Unknown]
  - Therapeutic product effect incomplete [Unknown]

NARRATIVE: CASE EVENT DATE: 20210531
